FAERS Safety Report 9079099 (Version 1)
Quarter: 2013Q1

REPORT INFORMATION
  Report Type: Report from Study
  Country: US (occurrence: US)
  Receive Date: 20130130
  Receipt Date: 20130130
  Transmission Date: 20140127
  Serious: No
  Sender: FDA-Public Use
  Company Number: US-ABBOTT-12P-163-0950397-00

PATIENT
  Age: 62 Year
  Sex: Male

DRUGS (10)
  1. HUMIRA [Suspect]
     Indication: PSORIATIC ARTHROPATHY
     Dates: start: 201204
  2. DILTIAZEM [Concomitant]
     Indication: HYPERTENSION
  3. DILTIAZEM [Concomitant]
     Indication: ANGINA PECTORIS
  4. ISOSORBIDE [Concomitant]
     Indication: ANGINA PECTORIS
  5. METOPROLOL [Concomitant]
     Indication: HYPERTENSION
     Dosage: 1.5 DAILY
  6. LIPITOR [Concomitant]
     Indication: BLOOD CHOLESTEROL INCREASED
  7. ASPIRIN [Concomitant]
     Indication: CARDIAC DISORDER
  8. METHOTREXATE [Concomitant]
     Indication: PSORIATIC ARTHROPATHY
     Dosage: 6 TABLETS WEEKLY
  9. FOLIC ACID [Concomitant]
     Indication: BLOOD IRON DECREASED
  10. MELOXICAM [Concomitant]
     Indication: PAIN

REACTIONS (2)
  - Eye pruritus [Not Recovered/Not Resolved]
  - Rhinorrhoea [Not Recovered/Not Resolved]
